FAERS Safety Report 8023118-3 (Version None)
Quarter: 2012Q1

REPORT INFORMATION
  Report Type: 
  Country: None (occurrence: None)
  Receive Date: 20120104
  Receipt Date: 20111228
  Transmission Date: 20120608
  Serious: Yes (Hospitalization)
  Sender: FDA-Public Use
  Company Number: DE-AMGEN-DEUSP2011069137

PATIENT
  Age: 74 Year
  Sex: Female
  Weight: 63 kg

DRUGS (6)
  1. METOPROLOL SUCCINATE [Concomitant]
     Indication: HYPERTENSION
     Dosage: 100 MG, QD
     Route: 048
     Dates: start: 19950502
  2. TOPOTECAN [Concomitant]
     Indication: PRODUCT USED FOR UNKNOWN INDICATION
     Dosage: UNK
     Route: 042
     Dates: start: 20111212, end: 20111216
  3. SORAFENIB / PLACEBO [Concomitant]
     Dosage: 800 MG, QD
     Route: 048
     Dates: start: 20111217, end: 20111226
  4. TORSEMIDE [Concomitant]
     Indication: HYPERTENSION
     Dosage: 50 MG, QD
     Route: 048
     Dates: start: 20111001
  5. NEUPOGEN [Suspect]
     Indication: LEUKOPENIA
     Dosage: UNK
  6. VOLTAREN [Concomitant]
     Indication: PAIN
     Dosage: 145.6 MG, QD
     Route: 048
     Dates: start: 20081201

REACTIONS (1)
  - LEUKOPENIA [None]
